FAERS Safety Report 7053771-2 (Version None)
Quarter: 2010Q4

REPORT INFORMATION
  Report Type: 
  Country: None (occurrence: None)
  Receive Date: 20101020
  Receipt Date: 20101012
  Transmission Date: 20110411
  Serious: Yes (Hospitalization)
  Sender: FDA-Public Use
  Company Number: B0521005A

PATIENT
  Age: 71 Year
  Sex: Female
  Weight: 78 kg

DRUGS (9)
  1. ARIXTRA [Suspect]
     Route: 058
     Dates: start: 20071017, end: 20071022
  2. INIPOMP [Suspect]
     Indication: PRODUCT USED FOR UNKNOWN INDICATION
     Route: 048
     Dates: start: 20071018, end: 20071030
  3. SKENAN LP [Suspect]
     Route: 048
     Dates: start: 20071018, end: 20071030
  4. BIPROFENID [Suspect]
     Route: 048
     Dates: start: 20071019, end: 20071030
  5. FORLAX [Concomitant]
     Route: 048
     Dates: start: 20071022, end: 20071022
  6. DOLIPRANE [Concomitant]
     Dosage: 500MG EIGHT TIMES PER DAY
     Route: 048
     Dates: start: 20071018, end: 20071030
  7. CIRKAN [Concomitant]
     Indication: VENOUS INSUFFICIENCY
     Dosage: 60MG TWICE PER DAY
     Route: 048
     Dates: start: 20071016, end: 20071030
  8. LEXOMIL [Concomitant]
     Dosage: .5UNIT PER DAY
     Route: 048
     Dates: start: 20071016, end: 20071030
  9. CEBUTID [Concomitant]
     Route: 048
     Dates: end: 20101016

REACTIONS (2)
  - DRUG INEFFECTIVE [None]
  - THROMBOPHLEBITIS [None]
